FAERS Safety Report 8803694 (Version 2)
Quarter: 2012Q4

REPORT INFORMATION
  Report Type: 
  Country: US (occurrence: US)
  Receive Date: 20120924
  Receipt Date: 20121024
  Transmission Date: 20130627
  Serious: Yes (Other)
  Sender: FDA-Public Use
  Company Number: US-SANOFI-AVENTIS-2012SA068156

PATIENT
  Age: 12 Year
  Sex: Female

DRUGS (3)
  1. SOLOSTAR [Suspect]
     Indication: TYPE II DIABETES MELLITUS
     Dates: start: 2009
  2. LANTUS SOLOSTAR [Suspect]
     Indication: TYPE II DIABETES MELLITUS
     Dosage: Dose:30 unit(s)
     Route: 058
     Dates: start: 2009
  3. NOVOLOG [Concomitant]

REACTIONS (6)
  - Ketonuria [Recovered/Resolved]
  - Hyperglycaemia [Recovered/Resolved]
  - Vomiting [Recovered/Resolved]
  - Abdominal pain [Recovered/Resolved]
  - Blood glucose decreased [Recovered/Resolved]
  - Viral infection [Recovered/Resolved]
